FAERS Safety Report 10969174 (Version 4)
Quarter: 2015Q2

REPORT INFORMATION
  Report Type: Report from Study
  Country: JP (occurrence: JP)
  Receive Date: 20150331
  Receipt Date: 20150423
  Transmission Date: 20150821
  Serious: Yes (Hospitalization)
  Sender: FDA-Public Use
  Company Number: JP-AMGEN-JPNNI2015029965

PATIENT
  Age: 67 Year
  Sex: Male
  Weight: 56 kg

DRUGS (9)
  1. CALCIUM LEVOFOLINATE [Concomitant]
     Active Substance: LEVOLEUCOVORIN CALCIUM
     Indication: COLON CANCER
     Dosage: UNK, Q2WEEKS
     Route: 041
     Dates: start: 20150217, end: 20150302
  2. OXALIPLATIN. [Suspect]
     Active Substance: OXALIPLATIN
     Indication: COLON CANCER
     Dosage: 130 MG, Q2WEEKS
     Route: 041
     Dates: start: 20150217, end: 20150302
  3. 5-FU                               /00098801/ [Suspect]
     Active Substance: FLUOROURACIL
     Indication: COLON CANCER
     Dosage: 600 MG, Q2WK
     Route: 040
     Dates: start: 20150217, end: 20150304
  4. PANITUMUMAB [Suspect]
     Active Substance: PANITUMUMAB
     Dosage: 330 MG, Q2WEEKS
     Route: 041
     Dates: start: 20150302, end: 20150302
  5. PLAVIX [Concomitant]
     Active Substance: CLOPIDOGREL BISULFATE
     Indication: ACUTE MYOCARDIAL INFARCTION
     Dosage: UNK
     Route: 048
     Dates: start: 2009, end: 20150326
  6. PANITUMUMAB [Suspect]
     Active Substance: PANITUMUMAB
     Indication: COLON CANCER
     Dosage: 300 MG, Q2WEEKS
     Route: 041
     Dates: start: 20150217, end: 20150217
  7. OXALIPLATIN. [Suspect]
     Active Substance: OXALIPLATIN
     Indication: COLON CANCER
  8. 5-FU                               /00098801/ [Suspect]
     Active Substance: FLUOROURACIL
     Dosage: 3800 MG, Q2WEEKS
     Route: 041
     Dates: start: 20150217, end: 20150304
  9. BUFFERIN                           /00009201/ [Concomitant]
     Indication: ACUTE MYOCARDIAL INFARCTION
     Dosage: UNK
     Route: 048
     Dates: start: 2009, end: 20150326

REACTIONS (2)
  - Stomatitis [Not Recovered/Not Resolved]
  - Febrile neutropenia [Recovered/Resolved]

NARRATIVE: CASE EVENT DATE: 20150316
